FAERS Safety Report 4443220-2 (Version None)
Quarter: 2004Q3

REPORT INFORMATION
  Report Type: 
  Country: None (occurrence: None)
  Receive Date: 20040901
  Receipt Date: 20040825
  Transmission Date: 20050211
  Serious: Yes (Hospitalization, Other)
  Sender: FDA-Public Use
  Company Number: USA-2003-0010851

PATIENT
  Age: 59 Year
  Sex: Female

DRUGS (12)
  1. OXYCONTIN [Suspect]
     Indication: PAIN
     Dosage: SEE IMAGE
     Route: 048
     Dates: end: 20001101
  2. SINEQUAN [Concomitant]
  3. XANAX [Concomitant]
  4. DYAZIDE (HYDROCHLOROTHUIAZIDE) [Concomitant]
  5. NEURONTIN [Concomitant]
  6. CARDIZEM CD [Concomitant]
  7. ASPIRIN [Concomitant]
  8. PERCOCET [Concomitant]
  9. NITROGLYCERIN [Concomitant]
  10. MEPERGAN (PROMETHAZINE HYDROCHLORIDE, PETHIDINE HYDROCHLORIDE) [Concomitant]
  11. PHENERGAN (PROMETHAZINE HYDROCHLIORIDE) [Concomitant]
  12. LORTAB [Concomitant]

REACTIONS (45)
  - ABDOMINAL PAIN [None]
  - ANXIETY [None]
  - ARTHRALGIA [None]
  - ASTHENIA [None]
  - BACK PAIN [None]
  - CHEST PAIN [None]
  - CONSTIPATION [None]
  - CORNEAL ABRASION [None]
  - COUGH [None]
  - CRYING [None]
  - DECREASED APPETITE [None]
  - DEPRESSION [None]
  - DIARRHOEA [None]
  - DISEASE RECURRENCE [None]
  - DRUG ADDICT [None]
  - DRUG INEFFECTIVE [None]
  - DRUG WITHDRAWAL SYNDROME [None]
  - DYSPNOEA [None]
  - EXCORIATION [None]
  - GASTRIC DILATATION [None]
  - GASTRIC DISORDER [None]
  - GASTROENTERITIS [None]
  - HEADACHE [None]
  - HOMICIDAL IDEATION [None]
  - HYPERAESTHESIA [None]
  - ILEUS PARALYTIC [None]
  - INCREASED APPETITE [None]
  - INSOMNIA [None]
  - IRRITABILITY [None]
  - JOINT RANGE OF MOTION DECREASED [None]
  - JOINT SWELLING [None]
  - MIGRAINE [None]
  - MUSCULOSKELETAL PAIN [None]
  - MYOFASCIAL PAIN SYNDROME [None]
  - NAUSEA [None]
  - PAIN IN EXTREMITY [None]
  - PANIC ATTACK [None]
  - PHOTOPHOBIA [None]
  - PYREXIA [None]
  - RASH [None]
  - SMALL INTESTINAL OBSTRUCTION [None]
  - SUICIDAL IDEATION [None]
  - VISION BLURRED [None]
  - VOMITING [None]
  - WEIGHT INCREASED [None]
